FAERS Safety Report 6285499-0 (Version None)
Quarter: 2009Q3

REPORT INFORMATION
  Report Type: 
  Country: None (occurrence: None)
  Receive Date: 20090727
  Receipt Date: 20090707
  Transmission Date: 20100115
  Serious: Yes (Other)
  Sender: FDA-Public Use
  Company Number: PHEH2009US05830

PATIENT
  Sex: Female

DRUGS (1)
  1. FEMARA [Suspect]
     Dosage: UNK

REACTIONS (5)
  - BONE PAIN [None]
  - CHEST DISCOMFORT [None]
  - FLUID RETENTION [None]
  - LUNG INFECTION [None]
  - WEIGHT INCREASED [None]
